FAERS Safety Report 5678084-2 (Version None)
Quarter: 2008Q1

REPORT INFORMATION
  Report Type: 
  Country: None (occurrence: None)
  Receive Date: 20080324
  Receipt Date: 20080324
  Transmission Date: 20080703
  Serious: Yes (Other)
  Sender: FDA-Public Use
  Company Number: None

PATIENT
  Age: 37 Year
  Sex: Male
  Weight: 77.1115 kg

DRUGS (1)
  1. LEVAQUIN [Suspect]
     Indication: BRONCHITIS
     Dosage: 750 MG TABS ONCE DAILY PO
     Route: 048
     Dates: start: 20080313, end: 20080314

REACTIONS (10)
  - CONFUSIONAL STATE [None]
  - DIZZINESS [None]
  - FATIGUE [None]
  - HALLUCINATION [None]
  - INSOMNIA [None]
  - MENTAL STATUS CHANGES [None]
  - MOOD ALTERED [None]
  - MUSCLE TWITCHING [None]
  - MYALGIA [None]
  - NIGHTMARE [None]
